FAERS Safety Report 19271278 (Version 2)
Quarter: 2021Q3

REPORT INFORMATION
  Report Type: Spontaneous
  Country: US (occurrence: US)
  Receive Date: 20210518
  Receipt Date: 20210727
  Transmission Date: 20211014
  Serious: Yes (Hospitalization)
  Sender: FDA-Public Use
  Company Number: US-ELI_LILLY_AND_COMPANY-US202105005827

PATIENT
  Age: 50 Year
  Sex: Female
  Weight: 61.68 kg

DRUGS (2)
  1. EMGALITY [Suspect]
     Active Substance: GALCANEZUMAB-GNLM
     Dosage: 120 UNK
     Route: 058
     Dates: start: 20210219, end: 20210226
  2. EMGALITY [Suspect]
     Active Substance: GALCANEZUMAB-GNLM
     Indication: MIGRAINE
     Dosage: 240 MG, SINGLE
     Route: 058
     Dates: start: 20210119, end: 20210119

REACTIONS (3)
  - Blood glucose increased [Unknown]
  - Seizure [Recovered/Resolved]
  - Blood bicarbonate decreased [Unknown]

NARRATIVE: CASE EVENT DATE: 20210226
